FAERS Safety Report 20332934 (Version 1)
Quarter: 2022Q1

REPORT INFORMATION
  Report Type: Spontaneous
  Country: US (occurrence: US)
  Receive Date: 20220113
  Receipt Date: 20220113
  Transmission Date: 20220423
  Serious: Yes (Other)
  Sender: FDA-Public Use
  Company Number: US-ELI_LILLY_AND_COMPANY-US202201002687

PATIENT
  Age: 59 Year
  Sex: Female

DRUGS (1)
  1. HUMULIN R [Suspect]
     Active Substance: INSULIN HUMAN
     Indication: Product used for unknown indication
     Dosage: 300 U, DAILY
     Route: 065
     Dates: start: 2012

REACTIONS (3)
  - Cerebrovascular accident [Unknown]
  - Cerebrovascular accident [Unknown]
  - Mobility decreased [Unknown]

NARRATIVE: CASE EVENT DATE: 20180301
